FAERS Safety Report 13422114 (Version 7)
Quarter: 2017Q4

REPORT INFORMATION
  Report Type: Spontaneous
  Country: US (occurrence: US)
  Receive Date: 20170410
  Receipt Date: 20171206
  Transmission Date: 20180320
  Serious: No
  Sender: FDA-Public Use
  Company Number: US-TEVA-757299ACC

PATIENT
  Age: 35 Year
  Sex: Female

DRUGS (48)
  1. ROPINIROLE. [Concomitant]
     Active Substance: ROPINIROLE
     Dates: start: 20170507
  2. SPIRONOLACT [Concomitant]
     Active Substance: SPIRONOLACTONE
     Dates: start: 20170507
  3. PRAZOSIN HCL [Concomitant]
     Active Substance: PRAZOSIN HYDROCHLORIDE
     Dates: start: 20170214
  4. RIZATRIPTAN. [Concomitant]
     Active Substance: RIZATRIPTAN
     Dates: start: 20170207
  5. CELECOXIB. [Concomitant]
     Active Substance: CELECOXIB
     Dates: start: 20170428
  6. TRAMADOL HCL [Concomitant]
     Active Substance: TRAMADOL HYDROCHLORIDE
     Dates: start: 20170428
  7. ESTRADIOL DIS [Concomitant]
     Dates: start: 20170201
  8. ABREVA CRE 10 PERCENT [Concomitant]
  9. EPINEPHRINE. [Concomitant]
     Active Substance: EPINEPHRINE
  10. LEVOTHYROXIN [Concomitant]
     Active Substance: LEVOTHYROXINE
     Dates: start: 20161108
  11. VITAMIN D CAP 500000 UNT [Concomitant]
     Dates: start: 20170428
  12. VIVELLE-DOT DIS [Concomitant]
     Dates: start: 20170104
  13. ROPINIROLE. [Concomitant]
     Active Substance: ROPINIROLE
     Dates: start: 20170208
  14. AMOX/KCLAV [Concomitant]
  15. VITAMIN D CAP 500000 UNT [Concomitant]
     Dates: start: 20170202
  16. CLONAZEPAM. [Concomitant]
     Active Substance: CLONAZEPAM
     Dates: start: 20170417
  17. PANTOPRAZOLE [Concomitant]
     Active Substance: PANTOPRAZOLE
     Dates: start: 20161123
  18. PRAZOSIN HCL [Concomitant]
     Active Substance: PRAZOSIN HYDROCHLORIDE
     Dates: start: 20161121
  19. DICLOFENAC [Concomitant]
     Active Substance: DICLOFENAC
  20. VALACICLOVIR [Concomitant]
     Active Substance: VALACYCLOVIR HYDROCHLORIDE
  21. LEVOTHYROXIN [Concomitant]
     Active Substance: LEVOTHYROXINE
     Dates: start: 20161108
  22. VITAMIN D CAP 500000 UNT [Concomitant]
     Dates: start: 20161104
  23. VITAMIN D CAP 500000 UNT [Concomitant]
     Dates: start: 20161102
  24. SPIRONOLACT [Concomitant]
     Active Substance: SPIRONOLACTONE
     Dates: start: 20170302
  25. BACLOFEN. [Concomitant]
     Active Substance: BACLOFEN
     Dates: start: 20170103
  26. MEMANTINE. [Concomitant]
     Active Substance: MEMANTINE
  27. LEVOTHYROXIN [Concomitant]
     Active Substance: LEVOTHYROXINE
     Dates: start: 20170206
  28. PANTOPRAZOLE [Concomitant]
     Active Substance: PANTOPRAZOLE
     Dates: start: 20170316
  29. PRAZOSIN HCL [Concomitant]
     Active Substance: PRAZOSIN HYDROCHLORIDE
     Dates: start: 20170316
  30. LOPERAMIDE [Concomitant]
     Active Substance: LOPERAMIDE
     Dates: start: 20170103
  31. TRAMADOL HCL [Concomitant]
     Active Substance: TRAMADOL HYDROCHLORIDE
     Dates: start: 20170202
  32. MONTELUKAST [Concomitant]
     Active Substance: MONTELUKAST SODIUM
  33. TROPARIN [Concomitant]
  34. FLUTICASONE. [Concomitant]
     Active Substance: FLUTICASONE
  35. VENTOLIN [Concomitant]
     Active Substance: ALBUTEROL SULFATE
  36. CLONAZEPAM. [Concomitant]
     Active Substance: CLONAZEPAM
     Dates: start: 20170316
  37. CLONAZEPAM. [Concomitant]
     Active Substance: CLONAZEPAM
     Dates: start: 20170416
  38. LORAZEPAM. [Concomitant]
     Active Substance: LORAZEPAM
     Dates: start: 20170313
  39. VIVELLE-DOT DIS [Concomitant]
     Dates: start: 20170405
  40. ESTRADIOL DIS [Concomitant]
     Dates: start: 20170201
  41. LITHIUM CARB CAP 150MG [Concomitant]
  42. COPAXONE [Suspect]
     Active Substance: GLATIRAMER ACETATE
     Indication: MULTIPLE SCLEROSIS
     Route: 058
     Dates: start: 20170222
  43. VITAMIN D CAP 500000 UNT [Concomitant]
     Dates: start: 20170128
  44. CLONAZEPAM. [Concomitant]
     Active Substance: CLONAZEPAM
     Dates: start: 20161220
  45. LITHIUM CARB [Concomitant]
     Active Substance: LITHIUM CARBONATE
     Dates: start: 20170308
  46. BACLOFEN. [Concomitant]
     Active Substance: BACLOFEN
     Dates: start: 20170320
  47. LORATADINE. [Concomitant]
     Active Substance: LORATADINE
  48. ZOFRAN [Concomitant]
     Active Substance: ONDANSETRON HYDROCHLORIDE

REACTIONS (13)
  - Chest pain [Recovered/Resolved]
  - Flushing [Recovered/Resolved]
  - Injection site pain [Recovered/Resolved]
  - Injection site pruritus [Not Recovered/Not Resolved]
  - Injection site reaction [Not Recovered/Not Resolved]
  - Daydreaming [Recovered/Resolved]
  - Anxiety [Recovered/Resolved]
  - Injection site erythema [Not Recovered/Not Resolved]
  - Injection site mass [Recovered/Resolved]
  - Vision blurred [Unknown]
  - Nausea [Recovered/Resolved]
  - Heart rate increased [Unknown]
  - Blood oestrogen abnormal [Unknown]

NARRATIVE: CASE EVENT DATE: 201702
